FAERS Safety Report 5946085-2 (Version None)
Quarter: 2008Q4

REPORT INFORMATION
  Report Type: 
  Country: None (occurrence: None)
  Receive Date: 20081110
  Receipt Date: 20081027
  Transmission Date: 20090506
  Serious: Yes (Other)
  Sender: FDA-Public Use
  Company Number: US-ROCHE-584723

PATIENT
  Sex: Male

DRUGS (10)
  1. PEG-INTERFERON A-2A (RO 25-8310) [Suspect]
     Indication: HEPATITIS C
     Dosage: FORM: PFS.
     Route: 065
     Dates: start: 20080620, end: 20081021
  2. RIBAVIRIN [Suspect]
     Indication: HEPATITIS C
     Dosage: FORM REPORTED AS: PILL.
     Route: 065
     Dates: start: 20080620, end: 20081021
  3. PAXIL [Concomitant]
  4. WELLBUTRIN [Concomitant]
  5. PHENERGAN HCL [Concomitant]
  6. ZOFRAN [Concomitant]
  7. HYDROCODONE [Concomitant]
  8. CLONAZEPAM [Concomitant]
  9. TRAZODONE HCL [Concomitant]
  10. XANAX [Concomitant]

REACTIONS (9)
  - CANDIDIASIS [None]
  - CHEST PAIN [None]
  - FALL [None]
  - FEELING ABNORMAL [None]
  - HAEMORRHOIDS [None]
  - HOMICIDAL IDEATION [None]
  - PAINFUL DEFAECATION [None]
  - RASH [None]
  - SKIN ULCER [None]
